FAERS Safety Report 4564240-3 (Version None)
Quarter: 2005Q1

REPORT INFORMATION
  Report Type: 
  Country: None (occurrence: None)
  Receive Date: 20050128
  Receipt Date: 20030624
  Transmission Date: 20050727
  Serious: Yes (Life-Threatening, Hospitalization, Other)
  Sender: FDA-Public Use
  Company Number: US-GLAXOSMITHKLINE-A0414035A

PATIENT
  Age: 56 Year
  Sex: Male
  Weight: 86 kg

DRUGS (6)
  1. COMBIVIR [Suspect]
     Indication: HIV INFECTION
     Dosage: 1TAB TWICE PER DAY
     Route: 048
     Dates: start: 20011206
  2. KALETRA [Concomitant]
  3. AMBIEN [Concomitant]
  4. BACTRIM [Concomitant]
  5. CLARITIN [Concomitant]
  6. MULTI-VITAMINS [Concomitant]

REACTIONS (1)
  - ANAEMIA MACROCYTIC [None]
